FAERS Safety Report 7745185-4 (Version None)
Quarter: 2011Q3

REPORT INFORMATION
  Report Type: 
  Country: None (occurrence: None)
  Receive Date: 20110907
  Receipt Date: 20110822
  Transmission Date: 20111222
  Serious: Yes (Other)
  Sender: FDA-Public Use
  Company Number: OSCN-PR-1108S-0174

PATIENT
  Sex: Male

DRUGS (2)
  1. OMNISCAN [Suspect]
     Dosage: , SINGLE DOSE,
     Dates: start: 20021204, end: 20021204
  2. GADOLINIUM (   ) (GADOLINIUM) [Suspect]
     Dates: start: 19971003, end: 19971003

REACTIONS (1)
  - NEPHROGENIC SYSTEMIC FIBROSIS [None]
